FAERS Safety Report 7260275-0 (Version None)
Quarter: 2011Q1

REPORT INFORMATION
  Report Type: 
  Country: None (occurrence: None)
  Receive Date: 20110130
  Receipt Date: 20100914
  Transmission Date: 20110831
  Serious: Yes (Hospitalization)
  Sender: FDA-Public Use
  Company Number: US-ABBOTT-10P-163-0670096-00

PATIENT
  Sex: Female
  Weight: 90 kg

DRUGS (8)
  1. METFORMIN [Concomitant]
     Indication: TYPE 2 DIABETES MELLITUS
     Route: 048
  2. KETOCONAZOLE [Concomitant]
     Indication: ECZEMA
     Dosage: 2 CUTANEOUS APPLICATIONS DAILY
     Dates: start: 20090101, end: 20100801
  3. METOPROLOL [Concomitant]
     Indication: BLOOD PRESSURE INCREASED
     Route: 048
     Dates: start: 20100101, end: 20100501
  4. OMEPRAZOLE [Concomitant]
     Indication: PROPHYLAXIS
  5. ENALAPRIL MALEATE [Concomitant]
     Indication: BLOOD PRESSURE INCREASED
     Route: 048
     Dates: start: 20100501
  6. HUMIRA [Suspect]
     Indication: CROHN'S DISEASE
     Route: 058
     Dates: start: 20100202, end: 20100813
  7. OMEPRAZOLE [Concomitant]
     Indication: GASTRIC DISORDER
     Dosage: 1 CAPSULES DAILY AS NEEDED
     Route: 048
     Dates: start: 20040101
  8. SIMVASTATIN [Concomitant]
     Indication: BLOOD CHOLESTEROL
     Route: 048

REACTIONS (3)
  - HERPES ZOSTER [None]
  - RASH MACULAR [None]
  - SKIN INFECTION [None]
